FAERS Safety Report 5036416-2 (Version None)
Quarter: 2006Q2

REPORT INFORMATION
  Report Type: 
  Country: None (occurrence: None)
  Receive Date: 20060601
  Receipt Date: 20060411
  Transmission Date: 20061013
  Serious: No
  Sender: FDA-Public Use
  Company Number: US200604001927

PATIENT
  Age: 51 Year
  Sex: Female

DRUGS (6)
  1. CYMBALTA [Suspect]
     Indication: NEUROPATHY
     Dosage: 60 MG, ORAL
     Route: 048
     Dates: start: 20060321
  2. THEOPHYLLINE [Concomitant]
  3. LASIX [Concomitant]
  4. CELEBREX [Concomitant]
  5. LOVASTATIN [Concomitant]
  6. GLUCOPHAGE ^UNS^ (METFORMIN HYDROCHLORIDE) [Concomitant]

REACTIONS (3)
  - MICTURITION DISORDER [None]
  - NOCTURIA [None]
  - URINARY TRACT INFECTION [None]
